FAERS Safety Report 18634912 (Version 2)
Quarter: 2021Q1

REPORT INFORMATION
  Report Type: Spontaneous
  Country: LB (occurrence: LB)
  Receive Date: 20201218
  Receipt Date: 20210317
  Transmission Date: 20210419
  Serious: Yes (Death, Hospitalization, Other)
  Sender: FDA-Public Use
  Company Number: LB-BRISTOL-MYERS SQUIBB COMPANY-BMS-2020-106957

PATIENT
  Age: 55 Year
  Sex: Male

DRUGS (1)
  1. OPDIVO [Suspect]
     Active Substance: NIVOLUMAB
     Indication: LUNG NEOPLASM MALIGNANT
     Dosage: 200 MILLIGRAM, EVERY 15 DAYS
     Route: 042
     Dates: start: 20190802

REACTIONS (6)
  - Inflammation [Fatal]
  - Renal failure [Fatal]
  - Hypoglycaemia [Unknown]
  - Diabetes mellitus [Fatal]
  - Off label use [Unknown]
  - Mental impairment [Unknown]
